FAERS Safety Report 8499415-4 (Version None)
Quarter: 2012Q3

REPORT INFORMATION
  Report Type: 
  Country: None (occurrence: None)
  Receive Date: 20120710
  Receipt Date: 20120706
  Transmission Date: 20120928
  Serious: Yes (Hospitalization)
  Sender: FDA-Public Use
  Company Number: JP-VERTEX PHARMACEUTICALS INC.-AE-2012-006173

PATIENT
  Age: 66 Year
  Sex: Male

DRUGS (4)
  1. TELAVIC (TELAPREVIR) [Suspect]
     Route: 048
  2. TELAVIC (TELAPREVIR) [Suspect]
     Route: 048
  3. RIBAVIRIN [Concomitant]
     Route: 048
  4. PEGINTERFERON ALFA-2B [Concomitant]
     Route: 051

REACTIONS (2)
  - RENAL IMPAIRMENT [None]
  - ANAEMIA [None]
